FAERS Safety Report 5886204-X (Version None)
Quarter: 2008Q3

REPORT INFORMATION
  Report Type: 
  Country: None (occurrence: None)
  Receive Date: 20080912
  Receipt Date: 20080911
  Transmission Date: 20090109
  Serious: No
  Sender: FDA-Public Use
  Company Number: 2008-170337-NL

PATIENT
  Age: 30 Year
  Sex: Female

DRUGS (2)
  1. ETONOGESTREL [Suspect]
     Indication: CONTRACEPTION
     Dosage: DF SUBCUTANEOUS
     Route: 058
     Dates: start: 20070914, end: 20080112
  2. CIPROFLOXACIN HYDROCHLORIDE [Concomitant]

REACTIONS (6)
  - DEPRESSION [None]
  - DRUG INEFFECTIVE [None]
  - MENTAL DISORDER [None]
  - NERVOUSNESS [None]
  - SUICIDAL IDEATION [None]
  - WEIGHT DECREASED [None]
